FAERS Safety Report 26047075 (Version 1)
Quarter: 2025Q4

REPORT INFORMATION
  Report Type: Spontaneous
  Country: US (occurrence: None)
  Receive Date: 20251114
  Receipt Date: 20251114
  Transmission Date: 20260118
  Serious: Yes (Hospitalization)
  Sender: FDA-CTU
  Company Number: None

PATIENT
  Sex: Male

DRUGS (11)
  1. XIFAXAN [Suspect]
     Active Substance: RIFAXIMIN
     Indication: Hepatic cirrhosis
     Dosage: FREQUENCY : DAILY;?
     Route: 048
     Dates: start: 20230302
  2. APAP/CODEINE TAB 300-30MG [Concomitant]
  3. ATORVASTATIN [Concomitant]
     Active Substance: ATORVASTATIN
  4. BENZONATATE CAP100MG [Concomitant]
  5. JANUMET XR TAB 100-1000 [Concomitant]
  6. LANSOPRAZOLE [Concomitant]
     Active Substance: LANSOPRAZOLE
  7. LISINOPRIL [Concomitant]
     Active Substance: LISINOPRIL
  8. METOPROL sue TAB 25MG ER [Concomitant]
  9. NOVOLOG INJ FLEXPEN [Concomitant]
  10. TAMSULOSIN [Concomitant]
     Active Substance: TAMSULOSIN
  11. TYLENOL TAB 500MG [Concomitant]

REACTIONS (2)
  - Hospitalisation [None]
  - Therapy interrupted [None]
